FAERS Safety Report 7146465-6 (Version None)
Quarter: 2010Q4

REPORT INFORMATION
  Report Type: 
  Country: None (occurrence: None)
  Receive Date: 20101208
  Receipt Date: 20101130
  Transmission Date: 20110411
  Serious: Yes (Hospitalization)
  Sender: FDA-Public Use
  Company Number: PHHO2010PE16230

PATIENT
  Sex: Male
  Weight: 54.8 kg

DRUGS (9)
  1. BLINDED ALISKIREN ALI+TAB+CF [Suspect]
     Indication: CARDIAC FAILURE
     Dosage: CODE NOT BROKEN
     Route: 048
     Dates: start: 20100922, end: 20100924
  2. BLINDED ENALAPRIL COMP-ENA+ [Suspect]
     Indication: CARDIAC FAILURE
     Dosage: CODE NOT BROKEN
     Route: 048
     Dates: start: 20100922, end: 20100924
  3. BLINDED NO TREATMENT RECEIVED NOMED [Suspect]
     Indication: CARDIAC FAILURE
     Dosage: CODE NOT BROKEN
     Route: 048
     Dates: start: 20100922, end: 20100924
  4. ALISKIREN [Suspect]
     Indication: CARDIAC FAILURE
  5. COMPARATOR ENALAPRIL [Suspect]
     Indication: CARDIAC FAILURE
     Dosage: UNK
     Route: 048
     Dates: start: 20100824
  6. ACETYLSALICYLIC ACID [Suspect]
     Indication: THROMBOSIS PROPHYLAXIS
  7. CHLORPHENIRAMINE [Concomitant]
     Indication: NASOPHARYNGITIS
  8. PARACETAMOL [Concomitant]
     Indication: NASOPHARYNGITIS
  9. DEXTROMETHORPHAN HYDROBROMIDE [Concomitant]
     Indication: COUGH

REACTIONS (4)
  - HAEMATURIA [None]
  - RENAL CYST [None]
  - TACHYARRHYTHMIA [None]
  - URINARY TRACT INFECTION [None]
